FAERS Safety Report 25795693 (Version 1)
Quarter: 2025Q3

REPORT INFORMATION
  Report Type: Spontaneous
  Country: EU (occurrence: EU)
  Receive Date: 20250912
  Receipt Date: 20250912
  Transmission Date: 20251021
  Serious: Yes (Hospitalization)
  Sender: MERCK SHARP & DOHME LLC
  Company Number: EU-009507513-2305801

PATIENT
  Age: 1 Year
  Sex: Female
  Weight: 8.5 kg

DRUGS (2)
  1. VARIVAX [Suspect]
     Active Substance: VARICELLA-ZOSTER VIRUS STRAIN OKA/MERCK LIVE ANTIGEN
     Route: 030
     Dates: start: 20250708
  2. PRIORIX [Concomitant]
     Active Substance: MEASLES-MUMPS-RUBELLA VIRUS VACCINE
     Route: 030
     Dates: start: 20250708

REACTIONS (5)
  - Skin discolouration [Recovered/Resolved]
  - Erythema [Recovered/Resolved]
  - Vaccination site haematoma [Recovered/Resolved]
  - Urticaria [Recovered/Resolved]
  - Erythema [Unknown]

NARRATIVE: CASE EVENT DATE: 20250708
